FAERS Safety Report 8256398-X (Version None)
Quarter: 2012Q2

REPORT INFORMATION
  Report Type: 
  Country: None (occurrence: None)
  Receive Date: 20120403
  Receipt Date: 20120319
  Transmission Date: 20120825
  Serious: Yes (Other)
  Sender: FDA-Public Use
  Company Number: DE-CELGENEUS-062-50794-12032023

PATIENT
  Age: 67 Year
  Sex: Male

DRUGS (3)
  1. VIDAZA [Suspect]
     Route: 041
  2. CYTARABINE [Suspect]
     Route: 041
  3. DAUNORUBICIN HCL [Suspect]
     Route: 041

REACTIONS (18)
  - DISORIENTATION [None]
  - SKIN DISORDER [None]
  - NAUSEA [None]
  - THROMBOCYTOPENIA [None]
  - INJECTION SITE ERYTHEMA [None]
  - VOMITING [None]
  - SYNCOPE [None]
  - NEUTROPENIC SEPSIS [None]
  - FEBRILE NEUTROPENIA [None]
  - EPISTAXIS [None]
  - NEUTROPENIA [None]
  - LEUKOPENIA [None]
  - MELAENA [None]
  - DIARRHOEA [None]
  - HEPATIC ENZYME INCREASED [None]
  - HYPERTENSION [None]
  - DYSPNOEA [None]
  - BACTERAEMIA [None]
